FAERS Safety Report 24996931 (Version 1)
Quarter: 2025Q1

REPORT INFORMATION
  Report Type: Spontaneous
  Country: CN (occurrence: CN)
  Receive Date: 20250221
  Receipt Date: 20250221
  Transmission Date: 20250408
  Serious: Yes (Hospitalization)
  Sender: PFIZER
  Company Number: CN-PFIZER INC-PV202500020681

PATIENT
  Age: 58 Year
  Sex: Female

DRUGS (2)
  1. EPIRUBICIN [Suspect]
     Active Substance: EPIRUBICIN
     Indication: Invasive lobular breast carcinoma
     Dosage: 120 MG, 1X/DAY (THIRD DOSE)
     Route: 041
     Dates: start: 20250206, end: 20250206
  2. CYCLOPHOSPHAMIDE [Suspect]
     Active Substance: CYCLOPHOSPHAMIDE
     Indication: Invasive lobular breast carcinoma
     Dosage: 950 MG, 1X/DAY (THIRD DOSE)
     Route: 041
     Dates: start: 20250206, end: 20250206

REACTIONS (5)
  - Thrombocytopenia [Recovering/Resolving]
  - Granulocyte count decreased [Recovering/Resolving]
  - Pyrexia [Recovering/Resolving]
  - Cough [Recovering/Resolving]
  - Sputum abnormal [Unknown]

NARRATIVE: CASE EVENT DATE: 20250214
